FAERS Safety Report 5198727-X (Version None)
Quarter: 2007Q1

REPORT INFORMATION
  Report Type: 
  Country: None (occurrence: None)
  Receive Date: 20070104
  Receipt Date: 20061230
  Transmission Date: 20070707
  Serious: Yes (Other)
  Sender: FDA-Public Use
  Company Number: BR-GLAXOSMITHKLINE-A0633486A

PATIENT
  Age: 27 Year
  Sex: Male
  Weight: 75 kg

DRUGS (2)
  1. SERETIDE [Suspect]
     Indication: RESPIRATORY DISORDER
     Route: 055
     Dates: start: 20060528
  2. CLONAZEPAM [Concomitant]
     Dates: start: 20061227

REACTIONS (4)
  - APNOEA [None]
  - CHILLS [None]
  - DIZZINESS [None]
  - TREMOR [None]
